FAERS Safety Report 9266873 (Version 2)
Quarter: 2024Q3

REPORT INFORMATION
  Report Type: Spontaneous
  Country: FR (occurrence: FR)
  Receive Date: 20130502
  Receipt Date: 20240820
  Transmission Date: 20241016
  Serious: Yes (Life-Threatening, Hospitalization, Other)
  Sender: SANOFI AVENTIS
  Company Number: FR-SANOFI-AVENTIS-2013SA000055

PATIENT
  Age: 60 Year
  Sex: Female
  Weight: 103 kg

DRUGS (2)
  1. DOCETAXEL [Suspect]
     Active Substance: DOCETAXEL\DOCETAXEL ANHYDROUS
     Indication: Breast cancer stage III
     Dosage: 100 MG/M2,Q3W
  2. DOCETAXEL [Suspect]
     Active Substance: DOCETAXEL\DOCETAXEL ANHYDROUS
     Indication: HER2 negative breast cancer
     Dosage: 100 MG/M2,Q3W

REACTIONS (12)
  - Neutropenic colitis [Recovering/Resolving]
  - Pyrexia [Recovered/Resolved]
  - Abdominal pain [Recovered/Resolved]
  - Vomiting [Recovering/Resolving]
  - Diarrhoea [Recovering/Resolving]
  - Headache [Recovering/Resolving]
  - Tachycardia [Recovering/Resolving]
  - Dehydration [Recovering/Resolving]
  - Respiratory alkalosis [Recovering/Resolving]
  - Sepsis [Recovering/Resolving]
  - Acute kidney injury [Unknown]
  - Oliguria [Recovering/Resolving]
